FAERS Safety Report 8558803-8 (Version None)
Quarter: 2012Q3

REPORT INFORMATION
  Report Type: 
  Country: None (occurrence: None)
  Receive Date: 20120801
  Receipt Date: 20120723
  Transmission Date: 20120928
  Serious: Yes (Hospitalization, Other)
  Sender: FDA-Public Use
  Company Number: US-009507513-1207USA010282

PATIENT

DRUGS (8)
  1. AMARYL [Concomitant]
     Dosage: UNK
     Dates: start: 20120409
  2. AMLODIPINE [Concomitant]
     Dosage: UNK
     Route: 048
     Dates: start: 20120409
  3. JANUVIA [Suspect]
     Dosage: 100 MG, UNK
     Route: 048
  4. METFORMIN HCL [Suspect]
     Dosage: 500 MG, UNK
     Route: 048
  5. AMARYL [Concomitant]
     Dosage: UNK
     Route: 048
     Dates: start: 20110724, end: 20120404
  6. ASPIRIN [Concomitant]
     Dosage: UNK
     Route: 048
     Dates: start: 20120409
  7. AMLODIPINE [Concomitant]
     Dosage: UNK
     Route: 048
     Dates: start: 20040101, end: 20120404
  8. ASPIRIN [Concomitant]
     Dosage: UNK
     Route: 048
     Dates: start: 20040101, end: 20120404

REACTIONS (4)
  - ASPARTATE AMINOTRANSFERASE INCREASED [None]
  - HEPATIC FUNCTION ABNORMAL [None]
  - JAUNDICE [None]
  - ALANINE AMINOTRANSFERASE INCREASED [None]
